FAERS Safety Report 17529699 (Version 1)
Quarter: 2020Q1

REPORT INFORMATION
  Report Type: Spontaneous
  Country: DK (occurrence: DK)
  Receive Date: 20200311
  Receipt Date: 20200311
  Transmission Date: 20200409
  Serious: Yes (Disabling)
  Sender: FDA-Public Use
  Company Number: DK-MYLANLABS-2020M1025815

PATIENT
  Age: 81 Year
  Sex: Female

DRUGS (2)
  1. MUCOMYST [Suspect]
     Active Substance: ACETYLCYSTEINE
     Indication: PRODUCTIVE COUGH
     Dosage: UNK (STYRKE: 200 MG.  DOSIS: UKENDT)
     Route: 048
     Dates: start: 2019
  2. FEMAR [Concomitant]
     Active Substance: LETROZOLE
     Indication: BREAST CANCER
     Dosage: 2.5 MILLIGRAM, QD(STYRKE: 2,5 MG)
     Route: 048
     Dates: start: 20190826

REACTIONS (2)
  - Hypoacusis [Not Recovered/Not Resolved]
  - Tinnitus [Not Recovered/Not Resolved]
